FAERS Safety Report 19805896 (Version 1)
Quarter: 2021Q3

REPORT INFORMATION
  Report Type: Spontaneous
  Country: US (occurrence: US)
  Receive Date: 20210908
  Receipt Date: 20210908
  Transmission Date: 20211014
  Serious: No
  Sender: FDA-Public Use
  Company Number: US-ASTELLAS-2021US016309

PATIENT
  Sex: Male

DRUGS (1)
  1. XTANDI [Suspect]
     Active Substance: ENZALUTAMIDE
     Indication: PRODUCT USED FOR UNKNOWN INDICATION
     Dosage: 40 MG, 4 TIMES DAILY (40 MG 1 CAPSULE AT 9 AM, 1 PM, 5 PM AND 9 PM PER DAY)
     Route: 065

REACTIONS (1)
  - Inappropriate schedule of product administration [Unknown]
